FAERS Safety Report 7944938-7 (Version None)
Quarter: 2011Q4

REPORT INFORMATION
  Report Type: 
  Country: None (occurrence: None)
  Receive Date: 20111129
  Receipt Date: 20111116
  Transmission Date: 20120403
  Serious: Yes (Hospitalization)
  Sender: FDA-Public Use
  Company Number: PHHY2011FR58621

PATIENT
  Age: 51 Year
  Sex: Male

DRUGS (3)
  1. TEGRETOL [Suspect]
     Indication: PAIN
     Dosage: 2 DF, DAILY
     Dates: start: 20110526, end: 20110530
  2. IXEL [Suspect]
     Indication: PAIN
     Dosage: 2 DF, DAILY
     Dates: start: 20110516, end: 20110528
  3. CLONAZEPAM [Suspect]
     Indication: PAIN
     Dosage: 60 GTT, DAILY
     Dates: start: 20110526, end: 20110530

REACTIONS (26)
  - RASH PUSTULAR [None]
  - CONJUNCTIVITIS [None]
  - IMPETIGO [None]
  - CONJUNCTIVAL HYPERAEMIA [None]
  - ASPARTATE AMINOTRANSFERASE INCREASED [None]
  - STAPHYLOCOCCAL INFECTION [None]
  - SUPERINFECTION BACTERIAL [None]
  - TOXIC SKIN ERUPTION [None]
  - PURPURA [None]
  - PUNCTATE KERATITIS [None]
  - CHEILITIS [None]
  - LYMPHADENOPATHY [None]
  - C-REACTIVE PROTEIN INCREASED [None]
  - ASTHENIA [None]
  - RASH MACULO-PAPULAR [None]
  - RASH GENERALISED [None]
  - LIP OEDEMA [None]
  - ALANINE AMINOTRANSFERASE INCREASED [None]
  - BURNING SENSATION [None]
  - PRURITUS [None]
  - SCAB [None]
  - GENERAL PHYSICAL HEALTH DETERIORATION [None]
  - BODY TEMPERATURE INCREASED [None]
  - GAMMA-GLUTAMYLTRANSFERASE INCREASED [None]
  - EYELID OEDEMA [None]
  - SYMBLEPHARON [None]
